FAERS Safety Report 9480554 (Version 1)
Quarter: 2013Q3

REPORT INFORMATION
  Report Type: Spontaneous
  Country: US (occurrence: US)
  Receive Date: 20130828
  Receipt Date: 20130828
  Transmission Date: 20140515
  Serious: Yes (Other)
  Sender: FDA-Public Use
  Company Number: US-AMGEN-KDL110385

PATIENT
  Age: 57 Year
  Sex: Female

DRUGS (3)
  1. ENBREL [Suspect]
     Indication: RHEUMATOID ARTHRITIS
     Dosage: 50 MG, QWK
     Route: 058
     Dates: start: 20030601
  2. METHOTREXATE [Concomitant]
     Dosage: UNK UNK, UNK
     Route: 058
  3. HYDROXYCHLOROQUINE SULFATE [Concomitant]
     Dosage: 200 MG, BID

REACTIONS (4)
  - Hepatic steatosis [Unknown]
  - Pleurisy [Unknown]
  - Rheumatoid arthritis [Unknown]
  - Condition aggravated [Unknown]
